FAERS Safety Report 4996593-6 (Version None)
Quarter: 2006Q2

REPORT INFORMATION
  Report Type: 
  Country: None (occurrence: None)
  Receive Date: 20060505
  Receipt Date: 20060419
  Transmission Date: 20061013
  Serious: Yes (Hospitalization)
  Sender: FDA-Public Use
  Company Number: DSA_28108_2006

PATIENT
  Age: 76 Year
  Sex: Female

DRUGS (4)
  1. DILTIAZEM HCL [Suspect]
     Indication: ANGINA PECTORIS
     Dosage: 100 MG Q DAY PO
     Route: 048
     Dates: start: 20060119, end: 20060225
  2. ARTIST [Suspect]
     Indication: ANGINA PECTORIS
     Dosage: 10 MG Q DAY PO
     Route: 048
     Dates: start: 20060223, end: 20060225
  3. ARTIST [Suspect]
     Indication: ANGINA PECTORIS
     Dosage: 5 MG Q DAY PO
     Route: 048
     Dates: end: 20060222
  4. TAMBOCOR [Suspect]
     Indication: SUPRAVENTRICULAR TACHYCARDIA
     Dosage: 300 MG Q DAY PO
     Route: 048
     Dates: start: 20060215, end: 20060223

REACTIONS (7)
  - BLOOD PRESSURE SYSTOLIC INCREASED [None]
  - BODY TEMPERATURE DECREASED [None]
  - DRUG INTERACTION [None]
  - HEART RATE DECREASED [None]
  - MALAISE [None]
  - MYOCARDIAL ISCHAEMIA [None]
  - SICK SINUS SYNDROME [None]
